FAERS Safety Report 18306911 (Version 11)
Quarter: 2021Q1

REPORT INFORMATION
  Report Type: Report from Study
  Country: US (occurrence: US)
  Receive Date: 20200924
  Receipt Date: 20210215
  Transmission Date: 20210419
  Serious: Yes (Death, Life-Threatening, Hospitalization)
  Sender: FDA-Public Use
  Company Number: US-ROCHE-2677271

PATIENT
  Age: 44 Year
  Sex: Female
  Weight: 98 kg

DRUGS (105)
  1. LOVENOX [Concomitant]
     Active Substance: ENOXAPARIN SODIUM
     Indication: COVID-19
     Dates: start: 20200910, end: 20200911
  2. PROTONIX [Concomitant]
     Active Substance: PANTOPRAZOLE SODIUM
     Indication: GASTROOESOPHAGEAL REFLUX DISEASE
     Dates: start: 20200910, end: 20200924
  3. FAMOTIDINE. [Concomitant]
     Active Substance: FAMOTIDINE
     Indication: GASTROOESOPHAGEAL REFLUX DISEASE
     Dates: start: 20200828, end: 20200909
  4. CISATRACURIUM. [Concomitant]
     Active Substance: CISATRACURIUM
     Indication: COVID-19
     Dates: start: 20200912, end: 20200912
  5. LACTATED RINGERS SOLUTION [Concomitant]
     Active Substance: CALCIUM CHLORIDE\POTASSIUM CHLORIDE\SODIUM CHLORIDE\SODIUM LACTATE
     Indication: COVID-19
     Dosage: 50 UNITS
     Dates: start: 20200909, end: 20200909
  6. PROPOFOL. [Concomitant]
     Active Substance: PROPOFOL
     Indication: COVID-19
     Dates: start: 20200911, end: 20200913
  7. WHITE PETROLATUM [Concomitant]
     Active Substance: PETROLATUM
     Indication: COVID-19
     Dosage: MINERAL OIL
     Dates: start: 20200911, end: 20200914
  8. CALCIUM GLUCONATE. [Concomitant]
     Active Substance: CALCIUM GLUCONATE
     Indication: BLOOD CALCIUM DECREASED
     Dates: start: 20200913, end: 20200924
  9. OXYGEN. [Concomitant]
     Active Substance: OXYGEN
     Route: 007
     Dates: start: 20200915
  10. OXYGEN. [Concomitant]
     Active Substance: OXYGEN
     Dosage: 100 L/MIN
     Route: 055
     Dates: start: 20200910
  11. OXYGEN. [Concomitant]
     Active Substance: OXYGEN
     Route: 007
     Dates: start: 20200918
  12. OXYGEN. [Concomitant]
     Active Substance: OXYGEN
     Dosage: 6 L/MIN
     Route: 055
     Dates: start: 20200910
  13. ACETAMINOPHEN. [Concomitant]
     Active Substance: ACETAMINOPHEN
     Indication: COVID-19
  14. METHYLPREDNISOLONE. [Concomitant]
     Active Substance: METHYLPREDNISOLONE
     Indication: PRURITUS
     Dates: start: 20200910, end: 20200910
  15. CLONAZEPAM. [Concomitant]
     Active Substance: CLONAZEPAM
     Indication: COVID-19
     Dates: start: 20200912, end: 20200912
  16. DEXMEDETOMIDINE. [Concomitant]
     Active Substance: DEXMEDETOMIDINE
     Dates: start: 20200911, end: 20200911
  17. LORAZEPAM. [Concomitant]
     Active Substance: LORAZEPAM
     Indication: COVID-19
  18. SODIUM CHLORIDE. [Concomitant]
     Active Substance: SODIUM CHLORIDE
     Indication: INFUSION
     Dates: start: 20200909, end: 20200910
  19. SODIUM CITRATE. [Concomitant]
     Active Substance: SODIUM CITRATE
     Dates: start: 20200913, end: 20200915
  20. POLYETHYLENE GLYCOL [Concomitant]
     Active Substance: POLYETHYLENE GLYCOLS
     Indication: CONSTIPATION
     Dates: start: 20200915, end: 20200917
  21. OXYGEN. [Concomitant]
     Active Substance: OXYGEN
     Route: 007
     Dates: start: 20200918
  22. OXYGEN. [Concomitant]
     Active Substance: OXYGEN
     Route: 007
     Dates: start: 20200911
  23. OXYGEN. [Concomitant]
     Active Substance: OXYGEN
     Route: 007
     Dates: start: 20200922
  24. OXYGEN. [Concomitant]
     Active Substance: OXYGEN
     Route: 007
     Dates: start: 20200915
  25. OXYGEN. [Concomitant]
     Active Substance: OXYGEN
     Route: 007
     Dates: start: 20200913
  26. OXYGEN. [Concomitant]
     Active Substance: OXYGEN
     Route: 007
     Dates: start: 20200912
  27. ZOFRAN [Concomitant]
     Active Substance: ONDANSETRON HYDROCHLORIDE
     Indication: NAUSEA
     Dates: start: 20200910, end: 20200911
  28. CISATRACURIUM. [Concomitant]
     Active Substance: CISATRACURIUM
     Dosage: 2.5 OTHER
     Dates: start: 20200911, end: 20200912
  29. DOBUTAMINE [Concomitant]
     Active Substance: DOBUTAMINE HYDROCHLORIDE
     Indication: BLOOD PRESSURE MEASUREMENT
     Dates: start: 20200911, end: 20200911
  30. NOREPINEPHRINE. [Concomitant]
     Active Substance: NOREPINEPHRINE
     Indication: COVID-19
  31. SODIUM CHLORIDE. [Concomitant]
     Active Substance: SODIUM CHLORIDE
     Dates: start: 20200910, end: 20200910
  32. VANCOMYCIN [Concomitant]
     Active Substance: VANCOMYCIN
     Dates: start: 20200923, end: 20200923
  33. VASOPRESSIN. [Concomitant]
     Active Substance: VASOPRESSIN
     Indication: COVID-19
  34. DOCUSATE [Concomitant]
     Active Substance: DOCUSATE
     Indication: COVID-19
     Dates: start: 20200915, end: 20200924
  35. OXYGEN. [Concomitant]
     Active Substance: OXYGEN
     Route: 007
     Dates: start: 20200914
  36. OXYGEN. [Concomitant]
     Active Substance: OXYGEN
     Route: 007
     Dates: start: 20200919
  37. OXYGEN. [Concomitant]
     Active Substance: OXYGEN
     Route: 007
     Dates: start: 20200923
  38. OXYGEN. [Concomitant]
     Active Substance: OXYGEN
     Route: 007
     Dates: start: 20200917
  39. OXYGEN. [Concomitant]
     Active Substance: OXYGEN
     Route: 007
     Dates: start: 20200914
  40. DEXMEDETOMIDINE. [Concomitant]
     Active Substance: DEXMEDETOMIDINE
     Indication: COVID-19
     Dates: start: 20200911, end: 20200911
  41. FENTANYL. [Concomitant]
     Active Substance: FENTANYL
     Indication: PAIN
     Dates: start: 20200911, end: 20200924
  42. LACTATED RINGERS SOLUTION [Concomitant]
     Active Substance: CALCIUM CHLORIDE\POTASSIUM CHLORIDE\SODIUM CHLORIDE\SODIUM LACTATE
     Dates: start: 20200923, end: 20200924
  43. LORAZEPAM. [Concomitant]
     Active Substance: LORAZEPAM
     Indication: ANXIETY
     Dates: start: 20200911, end: 20200911
  44. OXYGEN. [Concomitant]
     Active Substance: OXYGEN
     Route: 007
     Dates: start: 20200921
  45. OXYGEN. [Concomitant]
     Active Substance: OXYGEN
     Route: 007
     Dates: start: 20200917
  46. TOCILIZUMAB. [Suspect]
     Active Substance: TOCILIZUMAB
     Indication: COVID-19 PNEUMONIA
     Dosage: DATE OF MOST RECENT DOSE OF TOCILIZUMAB (100 ML) PRIOR TO AE ONSET: 11/SEP/2020 AT 05:47 PM TILL 6:4
     Route: 042
     Dates: start: 20200910
  47. GLUCAGON. [Concomitant]
     Active Substance: GLUCAGON
     Indication: HYPOGLYCAEMIA
     Dates: start: 20200910, end: 20200914
  48. LANTUS [Concomitant]
     Active Substance: INSULIN GLARGINE
     Indication: DIABETES MELLITUS
     Dates: start: 20200911, end: 20200912
  49. LANTUS [Concomitant]
     Active Substance: INSULIN GLARGINE
     Dosage: 50 UNITS
     Dates: start: 20200912, end: 20200924
  50. ALTEPLASE. [Concomitant]
     Active Substance: ALTEPLASE
     Indication: COVID-19
     Route: 042
     Dates: start: 20200911, end: 20200911
  51. HALOPERIDOL LACTATE. [Concomitant]
     Active Substance: HALOPERIDOL LACTATE
     Indication: COVID-19
     Dates: start: 20200911, end: 20200911
  52. NOREPINEPHRINE. [Concomitant]
     Active Substance: NOREPINEPHRINE
     Indication: BLOOD PRESSURE MEASUREMENT
     Dates: start: 20200912, end: 20200924
  53. PIPERACILLIN AND TAZOBACTAM [Concomitant]
     Active Substance: PIPERACILLIN SODIUM\TAZOBACTAM SODIUM
     Indication: COVID-19
     Dates: start: 20200912, end: 20200919
  54. VASOPRESSIN. [Concomitant]
     Active Substance: VASOPRESSIN
     Indication: SHOCK
     Dates: start: 20200911, end: 20200912
  55. ROCURONIUM [Concomitant]
     Active Substance: ROCURONIUM BROMIDE
     Indication: COVID-19
     Dates: start: 20200914, end: 20200914
  56. BISACODYL. [Concomitant]
     Active Substance: BISACODYL
     Indication: CONSTIPATION
     Dates: start: 20200917, end: 20200918
  57. OXYGEN. [Concomitant]
     Active Substance: OXYGEN
     Route: 007
     Dates: start: 20200923
  58. OXYGEN. [Concomitant]
     Active Substance: OXYGEN
     Route: 007
     Dates: start: 20200922
  59. OXYGEN. [Concomitant]
     Active Substance: OXYGEN
     Route: 007
     Dates: start: 20200920
  60. SOLU?MEDROL [Concomitant]
     Active Substance: METHYLPREDNISOLONE SODIUM SUCCINATE
     Indication: COVID-19
     Dates: start: 20200910, end: 20200919
  61. DEXTROSE IN WATER [Concomitant]
     Active Substance: DEXTROSE\WATER
     Indication: HYPOGLYCAEMIA
     Dates: start: 20200910, end: 20200924
  62. DIPHENHYDRAMINE. [Concomitant]
     Active Substance: DIPHENHYDRAMINE
     Indication: COVID-19
     Dates: start: 20200910, end: 20200910
  63. CISATRACURIUM. [Concomitant]
     Active Substance: CISATRACURIUM
     Dosage: 1.5 OTHER
     Dates: start: 20200912, end: 20200912
  64. FENTANYL. [Concomitant]
     Active Substance: FENTANYL
     Indication: COVID-19
     Dosage: DOSE: 50 OTHER
     Dates: start: 20200911, end: 20200911
  65. HEPARIN [Concomitant]
     Active Substance: HEPARIN SODIUM
     Dosage: DOSE: 1500 UNIT
     Dates: start: 20200912, end: 20200912
  66. SODIUM CHLORIDE. [Concomitant]
     Active Substance: SODIUM CHLORIDE
     Indication: COVID-19
     Dates: start: 20200912, end: 20200912
  67. IPRATROPIUM BROMIDE. [Concomitant]
     Active Substance: IPRATROPIUM BROMIDE
     Indication: COVID-19
     Dates: start: 20200921, end: 20200924
  68. SOLU?MEDROL [Concomitant]
     Active Substance: METHYLPREDNISOLONE SODIUM SUCCINATE
     Indication: COVID-19
     Dates: start: 20200921, end: 20200923
  69. OXYGEN. [Concomitant]
     Active Substance: OXYGEN
     Route: 007
     Dates: start: 20200911
  70. OXYGEN. [Concomitant]
     Active Substance: OXYGEN
     Route: 007
     Dates: start: 20200924
  71. OXYGEN. [Concomitant]
     Active Substance: OXYGEN
     Route: 007
     Dates: start: 20200920
  72. OXYGEN. [Concomitant]
     Active Substance: OXYGEN
     Route: 007
     Dates: start: 20200924
  73. OXYGEN. [Concomitant]
     Active Substance: OXYGEN
     Route: 007
     Dates: start: 20200916
  74. REMDESIVIR. [Suspect]
     Active Substance: REMDESIVIR
     Indication: COVID-19 PNEUMONIA
     Dosage: MOST RECENT DOSE OF REMDESVIR PRIOR TO AE/SAE  ONSET ON 10/SEP/2020 AT 8:53 PM TILL 10:07 PM
     Route: 042
     Dates: start: 20200910
  75. LOVENOX [Concomitant]
     Active Substance: ENOXAPARIN SODIUM
     Indication: THROMBOSIS PROPHYLAXIS
     Dates: start: 20200911, end: 20200911
  76. HUMAN INSULIN [Concomitant]
     Active Substance: INSULIN HUMAN
     Indication: DIABETES MELLITUS
     Dates: start: 20200910, end: 20200923
  77. SOLU?MEDROL [Concomitant]
     Active Substance: METHYLPREDNISOLONE SODIUM SUCCINATE
     Dates: start: 20200921, end: 20200923
  78. OMEPRAZOLE. [Concomitant]
     Active Substance: OMEPRAZOLE
     Indication: GASTROOESOPHAGEAL REFLUX DISEASE
     Dates: start: 20200828, end: 20200909
  79. HYPROMELLOSE [Concomitant]
     Active Substance: HYPROMELLOSES
     Indication: DRY EYE
     Dates: start: 20200911, end: 20200924
  80. HYPROMELLOSE [Concomitant]
     Active Substance: HYPROMELLOSES
     Indication: COVID-19
  81. CISATRACURIUM. [Concomitant]
     Active Substance: CISATRACURIUM
     Dosage: 3 OTHER
     Dates: start: 20200921, end: 20200924
  82. DEXMEDETOMIDINE. [Concomitant]
     Active Substance: DEXMEDETOMIDINE
     Dates: start: 20200911, end: 20200911
  83. DOBUTAMINE [Concomitant]
     Active Substance: DOBUTAMINE HYDROCHLORIDE
     Indication: COVID-19
  84. EPINEPHRINE. [Concomitant]
     Active Substance: EPINEPHRINE
     Indication: ANAPHYLACTIC REACTION
     Dates: start: 20200911, end: 20200911
  85. PROPOFOL. [Concomitant]
     Active Substance: PROPOFOL
     Dates: start: 20200917, end: 20200924
  86. CEFEPIME [Concomitant]
     Active Substance: CEFEPIME HYDROCHLORIDE
     Indication: COVID-19
     Dates: start: 20200923, end: 20200924
  87. OXYGEN. [Concomitant]
     Active Substance: OXYGEN
     Route: 007
     Dates: start: 20200912
  88. OXYGEN. [Concomitant]
     Active Substance: OXYGEN
     Route: 007
     Dates: start: 20200919
  89. OXYGEN. [Concomitant]
     Active Substance: OXYGEN
     Route: 007
     Dates: start: 20200921
  90. OXYGEN. [Concomitant]
     Active Substance: OXYGEN
     Dosage: 80 L/MIN
     Route: 055
     Dates: start: 20200911
  91. HUMAN INSULIN [Concomitant]
     Active Substance: INSULIN HUMAN
     Dates: start: 20200909, end: 20200909
  92. ACETAMINOPHEN. [Concomitant]
     Active Substance: ACETAMINOPHEN
     Indication: PAIN
     Dates: start: 20200910, end: 20200921
  93. HUMALOG [Concomitant]
     Active Substance: INSULIN LISPRO
     Indication: DIABETES MELLITUS
     Dates: start: 20200910, end: 20200924
  94. CHLORHEXIDINE GLUCONATE. [Concomitant]
     Active Substance: CHLORHEXIDINE GLUCONATE
     Dates: start: 20200911, end: 20200924
  95. CISATRACURIUM. [Concomitant]
     Active Substance: CISATRACURIUM
     Indication: RESPIRATORY DISTRESS
     Dates: start: 20200911, end: 20200911
  96. EPINEPHRINE. [Concomitant]
     Active Substance: EPINEPHRINE
     Indication: COVID-19
  97. HEPARIN [Concomitant]
     Active Substance: HEPARIN SODIUM
     Indication: COVID-19
     Dosage: 1800 UNITS
     Dates: start: 20200912, end: 20200923
  98. MIDAZOLAM. [Concomitant]
     Active Substance: MIDAZOLAM
     Indication: COVID-19
     Dates: start: 20200911, end: 20200913
  99. SODIUM BICARBONATE. [Concomitant]
     Active Substance: SODIUM BICARBONATE
     Indication: GASTROOESOPHAGEAL REFLUX DISEASE
     Dates: start: 20200911, end: 20200911
  100. VANCOMYCIN [Concomitant]
     Active Substance: VANCOMYCIN
     Indication: COVID-19
     Dates: start: 20200911, end: 20200911
  101. VANCOMYCIN [Concomitant]
     Active Substance: VANCOMYCIN
     Dates: start: 20200912, end: 20200914
  102. SENNOSIDES. [Concomitant]
     Active Substance: SENNOSIDES
     Indication: COVID-19
     Dates: start: 20200916, end: 20200924
  103. OXYGEN. [Concomitant]
     Active Substance: OXYGEN
     Dosage: 80 L/MIN
     Route: 055
     Dates: start: 20200910
  104. OXYGEN. [Concomitant]
     Active Substance: OXYGEN
     Route: 007
     Dates: start: 20200913
  105. OXYGEN. [Concomitant]
     Active Substance: OXYGEN
     Route: 007
     Dates: start: 20200916

REACTIONS (3)
  - Acute kidney injury [Recovering/Resolving]
  - COVID-19 pneumonia [Fatal]
  - Acute hepatic failure [Recovering/Resolving]

NARRATIVE: CASE EVENT DATE: 20200911
